FAERS Safety Report 9023748 (Version 1)
Quarter: 2013Q1

REPORT INFORMATION
  Report Type: Report from Study
  Country: US (occurrence: US)
  Receive Date: 20130121
  Receipt Date: 20130121
  Transmission Date: 20140127
  Serious: Yes (Hospitalization)
  Sender: FDA-Public Use
  Company Number: US-ABBOTT-13P-163-1035351-00

PATIENT
  Sex: Female
  Weight: 62.2 kg

DRUGS (15)
  1. HUMIRA [Suspect]
     Indication: PSORIASIS
     Route: 058
  2. HUMIRA [Suspect]
     Indication: RHEUMATOID ARTHRITIS
  3. METOPROLOL [Concomitant]
     Indication: HYPERTENSION
  4. CRESTOR [Concomitant]
     Indication: BLOOD CHOLESTEROL INCREASED
  5. PEPCID [Concomitant]
     Indication: GASTROOESOPHAGEAL REFLUX DISEASE
  6. FOLIC ACID [Concomitant]
     Indication: VITAMIN SUPPLEMENTATION
     Route: 058
  7. MAGNESIUM [Concomitant]
     Indication: MINERAL SUPPLEMENTATION
  8. ROPINIROL [Concomitant]
     Indication: RESTLESS LEGS SYNDROME
  9. CYMBALTA [Concomitant]
     Indication: PAIN MANAGEMENT
  10. TOVIAZ [Concomitant]
     Indication: INCONTINENCE
  11. CALCIUM OYSTER SHELL [Concomitant]
     Indication: MINERAL SUPPLEMENTATION
  12. BRIMONIDINE [Concomitant]
     Indication: GLAUCOMA
     Dosage: LEFT EYE
  13. BRINZOLAMIDE [Concomitant]
     Indication: GLAUCOMA
     Dosage: LEFT EYE
  14. VEXOL [Concomitant]
     Indication: GLAUCOMA
     Dosage: LEFT EYE
  15. VITAMIN D NOS [Concomitant]
     Indication: VITAMIN SUPPLEMENTATION

REACTIONS (2)
  - Transient ischaemic attack [Recovered/Resolved]
  - Urinary tract infection [Recovered/Resolved]
